FAERS Safety Report 18666119 (Version 1)
Quarter: 2020Q4

REPORT INFORMATION
  Report Type: Spontaneous
  Country: DE (occurrence: DE)
  Receive Date: 20201226
  Receipt Date: 20201226
  Transmission Date: 20210114
  Serious: Yes (Hospitalization)
  Sender: FDA-Public Use
  Company Number: DE-TEVA-2020-DE-1861339

PATIENT
  Age: 75 Year
  Sex: Male

DRUGS (9)
  1. TORASEMID [Suspect]
     Active Substance: TORSEMIDE
     Dosage: 10 MILLIGRAM DAILY; 20 MG, 0.5-0-0-0
  2. CARVEDILOL. [Concomitant]
     Active Substance: CARVEDILOL
     Dosage: 6.25 MILLIGRAM DAILY; 1-0-0-0
  3. PANTOPRAZOL [Concomitant]
     Active Substance: PANTOPRAZOLE SODIUM
     Dosage: 40 MILLIGRAM DAILY; 1-0-0-0
  4. VITAMIN B1 [Concomitant]
     Active Substance: THIAMINE HYDROCHLORIDE
     Dosage: 100 MILLIGRAM DAILY; 1-0-0-0
  5. EISEN II [Concomitant]
     Active Substance: FERROUS SULFATE
     Dosage: 100 MILLIGRAM DAILY;  1-0-0-0
  6. LACTULOSE. [Concomitant]
     Active Substance: LACTULOSE
     Dosage: 20 ML, 1-1-1-0, UNIT DOSE : 60 ML
  7. ORNITHINASPARTAT [Concomitant]
     Dosage: 6 GRAM DAILY; 1-0-1-0
  8. ASS 100 [Suspect]
     Active Substance: ASPIRIN
     Dosage: 100 MILLIGRAM DAILY; 1-0-0-0
  9. SPIRONOLACTON [Suspect]
     Active Substance: SPIRONOLACTONE
     Dosage: 50 MILLIGRAM DAILY; 1-0-0-0

REACTIONS (4)
  - Fall [Unknown]
  - Anaemia [Unknown]
  - Fatigue [Unknown]
  - Asthenia [Unknown]
